FAERS Safety Report 8095554-0 (Version None)
Quarter: 2011Q4

REPORT INFORMATION
  Report Type: 
  Country: None (occurrence: None)
  Receive Date: 20111222
  Receipt Date: 20110930
  Transmission Date: 20120403
  Serious: Yes (Hospitalization)
  Sender: FDA-Public Use
  Company Number: UTC-010762

PATIENT
  Age: 36 Year
  Sex: Female
  Weight: 44.77 kg

DRUGS (3)
  1. COUMADIN [Concomitant]
  2. TYVASO [Suspect]
     Indication: PULMONARY HYPERTENSION
     Dosage: 18 TO 54 MICROGRAM (4 IN 1 D), INHALATION
     Route: 055
     Dates: start: 20101026
  3. TRACLEER [Concomitant]

REACTIONS (1)
  - FOOD POISONING [None]
